FAERS Safety Report 14768747 (Version 9)
Quarter: 2018Q3

REPORT INFORMATION
  Report Type: Report from Study
  Country: CA (occurrence: CA)
  Receive Date: 20180417
  Receipt Date: 20180914
  Transmission Date: 20181010
  Serious: Yes (Other)
  Sender: FDA-Public Use
  Company Number: CA-ROCHE-1173899

PATIENT
  Age: 63 Year
  Sex: Female
  Weight: 86 kg

DRUGS (21)
  1. ACTEMRA [Suspect]
     Active Substance: TOCILIZUMAB
     Indication: RHEUMATOID ARTHRITIS
     Route: 042
     Dates: start: 20111019
  2. ZOPLICONE [Concomitant]
     Active Substance: ZOPICLONE
  3. ACTONEL [Concomitant]
     Active Substance: RISEDRONATE SODIUM
  4. PREDNISONE. [Concomitant]
     Active Substance: PREDNISONE
  5. KOMBIGLYZE XR [Concomitant]
     Active Substance: METFORMIN HYDROCHLORIDE\SAXAGLIPTIN HYDROCHLORIDE
     Indication: DIABETES MELLITUS
  6. AVAPRO [Concomitant]
     Active Substance: IRBESARTAN
  7. FISH OIL [Concomitant]
     Active Substance: FISH OIL
  8. MYRBETRIQ [Concomitant]
     Active Substance: MIRABEGRON
  9. IRBESARTAN. [Concomitant]
     Active Substance: IRBESARTAN
  10. ACTEMRA [Suspect]
     Active Substance: TOCILIZUMAB
     Route: 042
     Dates: start: 20180522
  11. ACTEMRA [Suspect]
     Active Substance: TOCILIZUMAB
     Route: 042
     Dates: start: 20180104
  12. ACTEMRA [Suspect]
     Active Substance: TOCILIZUMAB
     Route: 042
     Dates: start: 20180424
  13. MARIJUANA OIL [Concomitant]
  14. ENBREL [Suspect]
     Active Substance: ETANERCEPT
     Indication: PRODUCT USED FOR UNKNOWN INDICATION
     Route: 065
  15. METHOTREXATE. [Concomitant]
     Active Substance: METHOTREXATE
  16. PANTOPRAZOLE [Concomitant]
     Active Substance: PANTOPRAZOLE
  17. TARGIN [Concomitant]
     Active Substance: NALOXONE HYDROCHLORIDE\OXYCODONE HYDROCHLORIDE
     Indication: PAIN
     Route: 065
  18. ATORVASTATIN [Concomitant]
     Active Substance: ATORVASTATIN
  19. ASA [Concomitant]
     Active Substance: ASPIRIN
  20. LEFLUNOMIDE. [Concomitant]
     Active Substance: LEFLUNOMIDE
  21. FORXIGA [Concomitant]
     Active Substance: DAPAGLIFLOZIN

REACTIONS (31)
  - Oedema peripheral [Not Recovered/Not Resolved]
  - Arthritis [Unknown]
  - Underdose [Unknown]
  - Nausea [Recovered/Resolved]
  - Skin ulcer [Unknown]
  - Disability assessment scale score increased [Unknown]
  - Arthralgia [Not Recovered/Not Resolved]
  - Diarrhoea [Recovered/Resolved]
  - Neck pain [Not Recovered/Not Resolved]
  - Joint swelling [Recovering/Resolving]
  - Blood pressure fluctuation [Unknown]
  - Pain [Recovering/Resolving]
  - Weight increased [Recovering/Resolving]
  - Nasopharyngitis [Not Recovered/Not Resolved]
  - Peripheral swelling [Recovering/Resolving]
  - Feeling hot [Unknown]
  - Cough [Recovered/Resolved]
  - Skin ulcer [Unknown]
  - Gait disturbance [Unknown]
  - Pain in extremity [Unknown]
  - Dyspnoea [Not Recovered/Not Resolved]
  - Blood pressure increased [Unknown]
  - Arthralgia [Not Recovered/Not Resolved]
  - Dizziness [Unknown]
  - Skin induration [Unknown]
  - Incorrect dose administered [Unknown]
  - Helicobacter infection [Unknown]
  - Drug ineffective [Unknown]
  - Joint swelling [Unknown]
  - Blood glucose increased [Not Recovered/Not Resolved]
  - Blood pressure systolic increased [Unknown]

NARRATIVE: CASE EVENT DATE: 2012
